FAERS Safety Report 10921302 (Version 1)
Quarter: 2015Q1

REPORT INFORMATION
  Report Type: Spontaneous
  Country: ES (occurrence: None)
  Receive Date: 20150312
  Receipt Date: 20150312
  Transmission Date: 20150721
  Serious: Yes (Other)
  Sender: FDA-Public Use
  Company Number: 2271831

PATIENT
  Age: 53 Year
  Sex: Male

DRUGS (2)
  1. OXALIPLATIN. [Suspect]
     Active Substance: OXALIPLATIN
     Indication: RECTAL CANCER
     Dates: start: 201204, end: 201208
  2. RALTITREXED DISODIUM [Suspect]
     Active Substance: RALTITREXED
     Indication: RECTAL CANCER
     Dates: start: 201111, end: 201201

REACTIONS (4)
  - Large intestine polyp [None]
  - Neutropenia [None]
  - Neuropathy peripheral [None]
  - Constipation [None]
